FAERS Safety Report 24852570 (Version 1)
Quarter: 2025Q1

REPORT INFORMATION
  Report Type: Spontaneous
  Country: US (occurrence: US)
  Receive Date: 20250116
  Receipt Date: 20250116
  Transmission Date: 20250408
  Serious: No
  Sender: SK LIFE SCIENCE
  Company Number: US-SK LIFE SCIENCE, INC-SKPVG-2024-002460

PATIENT

DRUGS (8)
  1. XCOPRI [Suspect]
     Active Substance: CENOBAMATE
     Indication: Seizure
     Route: 048
     Dates: end: 20241013
  2. XCOPRI [Suspect]
     Active Substance: CENOBAMATE
     Dosage: 250MG TOTAL DAILY DOSE (50MG IN THE MORNING, AND 200MG AT NIGHT)
     Route: 048
     Dates: start: 20241014
  3. VITAMIN D3 [Concomitant]
     Active Substance: CHOLECALCIFEROL
     Indication: Product used for unknown indication
     Route: 065
  4. PREGABALIN [Concomitant]
     Active Substance: PREGABALIN
     Indication: Product used for unknown indication
     Dosage: 50 MILLIGRAM, QD (ONE CAPSULE BY MOUTH AT BEDTIME)
     Route: 048
  5. LEVOTHYROXINE [Concomitant]
     Active Substance: LEVOTHYROXINE
     Indication: Thyroid disorder
     Route: 065
  6. CLOBAZAM [Concomitant]
     Active Substance: CLOBAZAM
     Indication: Seizure
     Route: 065
  7. SOLIFENACIN [Concomitant]
     Active Substance: SOLIFENACIN
     Indication: Bladder disorder
     Dosage: 1 TAB, QD
     Route: 065
  8. LIOTHYRONINE [Concomitant]
     Active Substance: LIOTHYRONINE
     Indication: Thyroid disorder
     Dosage: 5MG (TAKE TWO TABLETS BY MOUTH DAILY)
     Route: 048

REACTIONS (4)
  - Ovarian cyst [Unknown]
  - Hot flush [Unknown]
  - Drug dose titration not performed [Unknown]
  - Somnolence [Recovered/Resolved]
